FAERS Safety Report 6721734-X (Version None)
Quarter: 2010Q2

REPORT INFORMATION
  Report Type: 
  Country: None (occurrence: None)
  Receive Date: 20100512
  Receipt Date: 20100501
  Transmission Date: 20101027
  Serious: Yes (Other)
  Sender: FDA-Public Use
  Company Number: US-BAXTER-2010BH012346

PATIENT
  Age: 39 Year
  Sex: Female

DRUGS (5)
  1. FENTANYL CITRATE [Suspect]
     Indication: OESOPHAGOGASTRODUODENOSCOPY
     Route: 065
  2. SERTRALINE [Suspect]
     Indication: DRUG USE FOR UNKNOWN INDICATION
  3. OCTREOTIDE ACETATE [Concomitant]
     Indication: DRUG USE FOR UNKNOWN INDICATION
     Route: 065
  4. PANTOPRAZOLE [Concomitant]
     Indication: DRUG USE FOR UNKNOWN INDICATION
     Route: 041
  5. MIDAZOLAM HCL [Concomitant]
     Indication: DRUG USE FOR UNKNOWN INDICATION
     Route: 065

REACTIONS (2)
  - DRUG INTERACTION [None]
  - SEROTONIN SYNDROME [None]
